FAERS Safety Report 11183274 (Version 2)
Quarter: 2015Q2

REPORT INFORMATION
  Report Type: Spontaneous
  Country: SE (occurrence: SE)
  Receive Date: 20150611
  Receipt Date: 20150629
  Transmission Date: 20150821
  Serious: Yes (Other)
  Sender: FDA-Public Use
  Company Number: SE-009507513-1506NOR001540

PATIENT
  Age: 63 Year
  Sex: Female

DRUGS (1)
  1. OVESTERIN [Suspect]
     Active Substance: ESTRIOL
     Indication: MUCOSAL DRYNESS
     Dosage: ONE OVULE AT NIGHT (0.5 MG, HS)
     Route: 067

REACTIONS (2)
  - Hypersensitivity [Recovered/Resolved]
  - Discomfort [Recovered/Resolved]
